FAERS Safety Report 9353697 (Version 2)
Quarter: 2013Q3

REPORT INFORMATION
  Report Type: Spontaneous
  Country: BR (occurrence: BR)
  Receive Date: 20130618
  Receipt Date: 20130716
  Transmission Date: 20140515
  Serious: Yes (Death)
  Sender: FDA-Public Use
  Company Number: BR-PFIZER INC-2012166517

PATIENT
  Age: 48 Year
  Sex: Male
  Weight: 56 kg

DRUGS (15)
  1. SUTENT [Suspect]
     Indication: RENAL CELL CARCINOMA
     Dosage: 50 MG, 1X/DAY, (1 TABLET DAILY) CYCLIC (CYCLE 4 PER 2)
     Route: 048
     Dates: start: 20120705, end: 2013
  2. METHADONE [Concomitant]
     Indication: PAIN
     Dosage: 10 MG, 4X/DAY (1 TABLET 4 TIMES PER DAY)
  3. METHADONE [Concomitant]
     Dosage: 10 MG, 3X/DAY (EVERY 8 HOURS)
  4. DIMORF [Concomitant]
     Indication: PAIN
     Dosage: 10 MG, 1 TABLET EVERY 4 HRS
  5. DECADRON [Concomitant]
     Indication: CONVULSION
     Dosage: 4 MG, 1X/DAY 1 TABLET 1X IN THE MORNING
  6. HIDANTAL [Concomitant]
     Indication: CONVULSION
     Dosage: 100 MG, 3X/DAY (1 TABLET EVERY 8 HOURS)
  7. BUSCOPAN COMPOSTO [Concomitant]
     Indication: ABDOMINAL PAIN
     Dosage: 1 DF, 3X/DAY (1 TABLET EVERY 8 HOURS)
  8. DRAMIN [Concomitant]
     Indication: NAUSEA
     Dosage: 50 MG, 4X/DAY (1 TABLET EVERY 6 HOURS)
  9. NOVALGINA [Concomitant]
     Indication: PAIN
     Dosage: 1 G, 4X/DAY (1 G EVERY 6 HOURS)
  10. NOVALGINA [Concomitant]
     Indication: PYREXIA
  11. PREGABALIN [Concomitant]
     Indication: PAIN
     Dosage: 75 MG, 2X/DAY (EVERY 12 HOURS)
  12. LORAZEPAM [Concomitant]
     Indication: SLEEP DISORDER
     Dosage: 2 MG, 1X/DAY (1 TABLET ONCE DAILY (AT NIGHT))
  13. OMEPRAZOLE [Concomitant]
     Indication: GASTRIC DISORDER
     Dosage: 40 MG, 1X/DAY (FASTING)
  14. MUVINLAX [Concomitant]
     Indication: FUNCTIONAL GASTROINTESTINAL DISORDER
     Dosage: 1 SACHET, 3X/DAY (EVERY 8 HOURS)
  15. LEXAPRO [Concomitant]
     Indication: DEPRESSION
     Dosage: 10 MG, 1X/DAY (1 TABLET IN THE MORNING)

REACTIONS (4)
  - Disease progression [Fatal]
  - Renal cell carcinoma [Fatal]
  - Blood pressure increased [Unknown]
  - Feeling hot [Unknown]
